FAERS Safety Report 9821412 (Version 1)
Quarter: 2014Q1

REPORT INFORMATION
  Report Type: Spontaneous
  Country: US (occurrence: None)
  Receive Date: 20140114
  Receipt Date: 20140114
  Transmission Date: 20141002
  Serious: Yes (Death)
  Sender: FDA-Public Use
  Company Number: AUR-APL-2014-00287

PATIENT
  Age: 71 Year
  Sex: Female

DRUGS (3)
  1. TRIMETHOPRIM+SULFAMETHOXAZOLE [Suspect]
     Indication: BACTERAEMIA
  2. IMIPENEM (IMIPENEM) [Suspect]
     Indication: BACTERAEMIA
  3. AMIKACIN (AMIKACIN) [Suspect]
     Indication: BACTERAEMIA

REACTIONS (10)
  - Drug ineffective [None]
  - Pyrexia [None]
  - Chills [None]
  - Cough [None]
  - Lethargy [None]
  - Tachycardia [None]
  - Tachypnoea [None]
  - Rales [None]
  - Acute respiratory distress syndrome [None]
  - Multi-organ failure [None]
